FAERS Safety Report 8850525 (Version 3)
Quarter: 2013Q1

REPORT INFORMATION
  Report Type: Spontaneous
  Country: US (occurrence: US)
  Receive Date: 20121019
  Receipt Date: 20130124
  Transmission Date: 20140127
  Serious: Yes (Hospitalization)
  Sender: FDA-Public Use
  Company Number: US-US-EMD SERONO, INC.-7167732

PATIENT
  Age: 58 Year
  Sex: Female

DRUGS (3)
  1. REBIF [Suspect]
     Indication: MULTIPLE SCLEROSIS
     Route: 058
     Dates: start: 20111205
  2. VITAMIN B12 [Concomitant]
     Indication: ANAEMIA
  3. IRON [Concomitant]
     Indication: ANAEMIA

REACTIONS (5)
  - Urinary tract infection [Recovered/Resolved]
  - Dehydration [Unknown]
  - Asthenia [Unknown]
  - Abnormal behaviour [Unknown]
  - Influenza like illness [Unknown]
